FAERS Safety Report 22001657 (Version 1)
Quarter: 2023Q1

REPORT INFORMATION
  Report Type: Spontaneous
  Country: PL (occurrence: PL)
  Receive Date: 20230216
  Receipt Date: 20230216
  Transmission Date: 20230417
  Serious: Yes (Death, Other)
  Sender: FDA-Public Use
  Company Number: PL-TEVA-2023-PL-2855847

PATIENT
  Age: 3 Year
  Sex: Male

DRUGS (24)
  1. VINCRISTINE [Suspect]
     Active Substance: VINCRISTINE
     Indication: T-cell lymphoma stage IV
     Dosage: 1.5 MG/M2 DAILY; PART OF INDUCTION (PHASE IA), PHASE IIA) RE-INTENSIFICATION THERAPY IN EURO-LB 02 P
     Route: 065
  2. METHOTREXATE [Suspect]
     Active Substance: METHOTREXATE
     Indication: T-cell lymphoma stage IV
     Dosage: 5 G/M2/DAY INFUSION; PART OF CONSOLIDATION THERAPY IN EURO-LB 02 PROTOCOL
     Route: 050
  3. METHOTREXATE [Suspect]
     Active Substance: METHOTREXATE
     Dosage: 20 MG/M2 DAILY; ONCE DAILY, PART OF MAINTENANCE THERAPY IN EURO-LB 02 PROTOCOL
     Route: 065
  4. METHOTREXATE [Suspect]
     Active Substance: METHOTREXATE
     Dosage: 1 G/M2; PART OF HC1 CONSOLIDATION THERAPY IN INTREALL HR-2010 PROTOCOL
     Route: 065
  5. PREDNISONE [Suspect]
     Active Substance: PREDNISONE
     Indication: T-cell lymphoma stage IV
     Dosage: 60 MG/M2 DAILY; PART OF CYTOREDUCTIVE (PRE-PHASE) AND INDUCTION THERAPY (PHASE IA) IN EURO-LB 02 PRO
     Route: 065
     Dates: start: 201908
  6. DAUNORUBICIN [Suspect]
     Active Substance: DAUNORUBICIN
     Indication: T-cell lymphoma stage IV
     Dosage: 30 MG/M2 DAILY; ONCE DAILY, PART OF INDUCTION THERAPY (PHASE IA) IN EURO-LB 02 PROTOCOL
     Route: 065
  7. ASPARAGINASE [Suspect]
     Active Substance: ASPARAGINASE
     Indication: T-cell lymphoma stage IV
     Dosage: 10,000 IU/M2; PART OF INDUCTION THERAPY (PHASE IA) AND (PHASE IIA) RE-INTENSIFICATION THERAPY IN ...
     Route: 065
  8. CYCLOPHOSPHAMIDE [Suspect]
     Active Substance: CYCLOPHOSPHAMIDE
     Indication: T-cell lymphoma stage IV
     Dosage: 1000 MG/M2 DAILY; PART OF INDUCTION THERAPY (PHASE IB) AND (PHASE IIB) RE-INTENSIFICATION THERAPY IN
     Route: 065
  9. CYCLOPHOSPHAMIDE [Suspect]
     Active Substance: CYCLOPHOSPHAMIDE
     Dosage: PART OF HC1 CONSOLIDATION THERAPY IN INTREALL HR-2010 PROTOCOL
     Route: 065
  10. CYTARABINE [Suspect]
     Active Substance: CYTARABINE
     Indication: T-cell lymphoma stage IV
     Dosage: 75 MG/M2 DAILY; PART OF INDUCTION THERAPY (PHASE IB) AND (PHASE IIB) RE-INTENSIFICATION THERAPY IN E
     Route: 065
  11. CYTARABINE [Suspect]
     Active Substance: CYTARABINE
     Dosage: 2 G/M2, PART OF HC1 CONSOLIDATION THERAPY IN INTREALL HR-2010 PROTOCOL
     Route: 065
  12. MERCAPTOPURINE [Suspect]
     Active Substance: MERCAPTOPURINE
     Indication: T-cell lymphoma stage IV
     Dosage: 60 MG/M2 DAILY; PART OF INDUCTION THERAPY (PHASE IB) IN EURO-LB 02 PROTOCOL
     Route: 065
  13. MERCAPTOPURINE [Suspect]
     Active Substance: MERCAPTOPURINE
     Dosage: 25 MG/M2 DAILY; PART OF CONSOLIDATION THERAPY IN EURO-LB 02 PROTOCOL
     Route: 065
  14. MERCAPTOPURINE [Suspect]
     Active Substance: MERCAPTOPURINE
     Dosage: 50 MG/M2 DAILY; PART OF MAINTENANCE THERAPY IN EURO-LB 02 PROTOCOL
     Route: 065
  15. DEXAMETHASONE [Suspect]
     Active Substance: DEXAMETHASONE
     Indication: T-cell lymphoma stage IV
     Dosage: 10 MG/M2 DAILY; PART OF (PHASE IIA) RE-INTENSIFICATION THERAPY IN EURO-LB 02 PROTOCOL AND HC1 CONSOL
     Route: 065
  16. DEXAMETHASONE [Suspect]
     Active Substance: DEXAMETHASONE
     Dosage: PART OF INDUCTION (COURSE HIB) THERAPY IN INTREALL HR-2010 PROTOCOL
     Route: 065
  17. MITOXANTRONE [Suspect]
     Active Substance: MITOXANTRONE HYDROCHLORIDE
     Indication: T-cell lymphoma stage IV
     Dosage: PART OF INDUCTION (COURSE HIB) THERAPY IN INTREALL HR-2010 PROTOCOL
     Route: 065
  18. PEG/L-ASPARAGINASE [Suspect]
     Active Substance: PEGASPARGASE
     Indication: T-cell lymphoma stage IV
     Dosage: 1000 U/M2; PART OF INDUCTION (COURSE HIB) THERAPY AND HC1 CONSOLIDATION THERAPY IN INTREALL HR-20...
     Route: 065
  19. BORTEZOMIB [Suspect]
     Active Substance: BORTEZOMIB
     Indication: T-cell lymphoma stage IV
     Dosage: 1.3 MG/M2 DAILY; PART OF INDUCTION (COURSE HIB) THERAPY IN INTREALL HR-2010 PROTOCOL AND AS A SUBSEQ
     Route: 065
  20. ETOPOSIDE [Suspect]
     Active Substance: ETOPOSIDE
     Indication: T-cell lymphoma stage IV
     Dosage: 75 MG/M2 DAILY; AS A SUBSEQUENT TREATMENT
     Route: 065
  21. AMOXICILLIN [Suspect]
     Active Substance: AMOXICILLIN
     Indication: Pyrexia
     Route: 065
  22. DOXORUBICIN [Concomitant]
     Active Substance: DOXORUBICIN
     Indication: T-cell lymphoma stage IV
     Dosage: 30 MG/M2 DAILY; PART OF (PHASE IIA) RE-INTENSIFICATION THERAPY IN EURO-LB 02 PROTOCOL
     Route: 065
  23. THIOGUANINE ANHYDROUS [Concomitant]
     Active Substance: THIOGUANINE ANHYDROUS
     Indication: T-cell lymphoma stage IV
     Dosage: 60 MG/M2 DAILY; PART OF (PHASE IIB) RE-INTENSIFICATION THERAPY IN EURO-LB 02 PROTOCOL
     Route: 065
  24. IMMUNOGLOBULINS [Concomitant]
     Indication: Product used for unknown indication
     Dosage: 0.4 G/KG BODY WEIGHT DURING ALL COURSES OF CHEMOTHERAPY
     Route: 042

REACTIONS (4)
  - Neurotoxicity [Unknown]
  - Hepatotoxicity [Unknown]
  - Seizure [Unknown]
  - Drug ineffective [Fatal]
